FAERS Safety Report 18924717 (Version 1)
Quarter: 2021Q1

REPORT INFORMATION
  Report Type: Spontaneous
  Country: US (occurrence: US)
  Receive Date: 20210222
  Receipt Date: 20210222
  Transmission Date: 20210420
  Serious: No
  Sender: FDA-Public Use
  Company Number: US-PERRIGO-20US009114

PATIENT
  Age: 57 Year
  Sex: Male
  Weight: 79.37 kg

DRUGS (4)
  1. THYROXINE [Concomitant]
     Active Substance: LEVOTHYROXINE
     Indication: AUTOIMMUNE THYROIDITIS
     Dosage: UNK
     Route: 065
     Dates: start: 1995
  2. TESTOSTERONE CYPIONATE. [Suspect]
     Active Substance: TESTOSTERONE CYPIONATE
     Indication: BLOOD TESTOSTERONE DECREASED
     Dosage: 250 MG, SINGLE
     Route: 030
     Dates: start: 20200529, end: 20200529
  3. TESTOSTERONE CYPIONATE. [Suspect]
     Active Substance: TESTOSTERONE CYPIONATE
     Dosage: 250 MG, SINGLE
     Route: 030
     Dates: start: 20200609, end: 20200609
  4. TESTOSTERONE CYPIONATE. [Suspect]
     Active Substance: TESTOSTERONE CYPIONATE
     Dosage: 250 MG, SINGLE
     Route: 030
     Dates: start: 20200619, end: 20200619

REACTIONS (5)
  - Product administered at inappropriate site [Unknown]
  - Inappropriate schedule of product administration [Unknown]
  - Libido decreased [Not Recovered/Not Resolved]
  - Drug ineffective [Unknown]
  - Body mass index increased [Not Recovered/Not Resolved]

NARRATIVE: CASE EVENT DATE: 20200529
